FAERS Safety Report 10339697 (Version 2)
Quarter: 2014Q3

REPORT INFORMATION
  Report Type: Spontaneous
  Country: US (occurrence: US)
  Receive Date: 20140724
  Receipt Date: 20140724
  Transmission Date: 20150326
  Serious: Yes (Hospitalization)
  Sender: FDA-Public Use
  Company Number: US-GLAXOSMITHKLINE-A0897789A

PATIENT
  Sex: Female
  Weight: 100 kg

DRUGS (1)
  1. AVANDIA [Suspect]
     Active Substance: ROSIGLITAZONE MALEATE
     Indication: TYPE 2 DIABETES MELLITUS
     Dosage: 4MG PER DAY
     Route: 048
     Dates: start: 200608, end: 200804

REACTIONS (8)
  - Ischaemic cardiomyopathy [Unknown]
  - Acute myocardial infarction [Not Recovered/Not Resolved]
  - Ischaemic stroke [Unknown]
  - Pericarditis [Unknown]
  - Cardiac failure congestive [Unknown]
  - Ventricular extrasystoles [Unknown]
  - Cerebrovascular accident [Unknown]
  - Coronary artery disease [Unknown]
